FAERS Safety Report 5157676-3 (Version None)
Quarter: 2006Q4

REPORT INFORMATION
  Report Type: 
  Country: None (occurrence: None)
  Receive Date: 20061127
  Receipt Date: 20061113
  Transmission Date: 20070319
  Serious: Yes (Other)
  Sender: FDA-Public Use
  Company Number: 2006AC02134

PATIENT
  Age: 31 Year
  Sex: Female

DRUGS (29)
  1. PROPOFOL [Suspect]
     Indication: STATUS EPILEPTICUS
     Dosage: 200 MG IN INCREMENTAL DOSES
  2. PROPOFOL [Suspect]
     Dosage: 200 MG IN INCREMENTAL DOSES
  3. PROPOFOL [Suspect]
  4. PROPOFOL [Suspect]
  5. PROPOFOL [Suspect]
     Dosage: INFUSION TAPERED OFF AND DISCONTINUED
  6. PROPOFOL [Suspect]
     Dosage: INFUSION TAPERED OFF AND DISCONTINUED
  7. THIOPENTAL SODIUM [Suspect]
     Indication: STATUS EPILEPTICUS
     Route: 042
  8. THIOPENTAL SODIUM [Suspect]
     Indication: INTUBATION
     Route: 042
  9. THIOPENTAL SODIUM [Suspect]
  10. THIOPENTAL SODIUM [Suspect]
  11. THIOPENTAL SODIUM [Suspect]
     Dosage: IN INCREMENTAL DOSES
  12. THIOPENTAL SODIUM [Suspect]
     Dosage: IN INCREMENTAL DOSES
  13. THIOPENTAL SODIUM [Suspect]
  14. THIOPENTAL SODIUM [Suspect]
  15. THIOPENTAL SODIUM [Suspect]
     Dosage: INFUSION TAPERED OFF AND DISCONTINUED
  16. THIOPENTAL SODIUM [Suspect]
     Dosage: INFUSION TAPERED OFF AND DISCONTINUED
  17. SODIUM CITRATE [Concomitant]
     Indication: PROPHYLAXIS
     Route: 048
  18. METOCLOPRAMIDE [Concomitant]
     Indication: PROPHYLAXIS
     Route: 042
  19. SUCCINYL CHOLINE [Concomitant]
     Indication: INTUBATION
  20. MIDAZOLAM [Concomitant]
     Indication: STATUS EPILEPTICUS
  21. DIAZEPAM [Concomitant]
     Indication: STATUS EPILEPTICUS
  22. DIAZEPAM [Concomitant]
     Dosage: IN INCREMENTAL DOSES
  23. DIPHENYLHYDANTOIN [Concomitant]
     Indication: STATUS EPILEPTICUS
  24. LORAZEPAM [Concomitant]
     Indication: STATUS EPILEPTICUS
  25. CALCIUM CHLORIDE [Concomitant]
     Indication: STATUS EPILEPTICUS
  26. MAGNESIUM SULFATE [Concomitant]
     Indication: STATUS EPILEPTICUS
     Dosage: 2 DOSES OF 2 G
  27. DEXTROSE [Concomitant]
     Route: 042
  28. PAROXETINE HCL [Concomitant]
     Indication: BIPOLAR DISORDER
  29. ATIVAN [Concomitant]
     Indication: BIPOLAR DISORDER

REACTIONS (11)
  - DIABETES INSIPIDUS [None]
  - DRUG EXPOSURE DURING PREGNANCY [None]
  - ENCEPHALOPATHY [None]
  - HYPOTENSION [None]
  - HYPOVOLAEMIA [None]
  - INTRA-UTERINE DEATH [None]
  - ISCHAEMIA [None]
  - MATERNAL CONDITION AFFECTING FOETUS [None]
  - PROCEDURAL COMPLICATION [None]
  - RENAL IMPAIRMENT [None]
  - VENTRICULAR DYSFUNCTION [None]
